FAERS Safety Report 13752665 (Version 3)
Quarter: 2017Q3

REPORT INFORMATION
  Report Type: Spontaneous
  Country: US (occurrence: US)
  Receive Date: 20170713
  Receipt Date: 20170809
  Transmission Date: 20171127
  Serious: Yes (Other)
  Sender: FDA-Public Use
  Company Number: US-TEVA-787006USA

PATIENT
  Sex: Female
  Weight: 97.61 kg

DRUGS (2)
  1. OXYBUTYNIN [Suspect]
     Active Substance: OXYBUTYNIN
     Indication: URINARY INCONTINENCE
     Route: 065
  2. LYRICA [Suspect]
     Active Substance: PREGABALIN
     Indication: NEUROPATHY PERIPHERAL
     Dosage: 300 MILLIGRAM DAILY;
     Route: 048

REACTIONS (3)
  - Drug ineffective [Unknown]
  - Coronary artery occlusion [Unknown]
  - Vascular occlusion [Recovering/Resolving]

NARRATIVE: CASE EVENT DATE: 2017
